FAERS Safety Report 10032981 (Version 3)
Quarter: 2014Q2

REPORT INFORMATION
  Report Type: Spontaneous
  Country: US (occurrence: US)
  Receive Date: 20140324
  Receipt Date: 20140417
  Transmission Date: 20141212
  Serious: Yes (Other)
  Sender: FDA-Public Use
  Company Number: US-PFIZER INC-2014080880

PATIENT
  Age: 43 Year
  Sex: Female

DRUGS (2)
  1. LYRICA [Suspect]
     Indication: FIBROMYALGIA
     Dosage: 300 MG, DAILY
     Route: 048
     Dates: start: 2007
  2. IVIG [Suspect]
     Indication: PROTEIN DEFICIENCY
     Dosage: UNK

REACTIONS (1)
  - Weight increased [Not Recovered/Not Resolved]
